FAERS Safety Report 5772284-9 (Version None)
Quarter: 2008Q2

REPORT INFORMATION
  Report Type: 
  Country: None (occurrence: None)
  Receive Date: 20080613
  Receipt Date: 20080605
  Transmission Date: 20081010
  Serious: Yes (Other)
  Sender: FDA-Public Use
  Company Number: PHNU2008DE02019

PATIENT
  Age: 20 Year
  Sex: Male

DRUGS (1)
  1. CLOZAPINE [Suspect]
     Dosage: 125 MG/DAY

REACTIONS (6)
  - ABDOMINAL PAIN [None]
  - BODY TEMPERATURE INCREASED [None]
  - MONOCYTE COUNT INCREASED [None]
  - MUSCLE TIGHTNESS [None]
  - NAUSEA [None]
  - VIRAL INFECTION [None]
